FAERS Safety Report 5828238-7 (Version None)
Quarter: 2008Q3

REPORT INFORMATION
  Report Type: 
  Country: None (occurrence: None)
  Receive Date: 20080729
  Receipt Date: 20080714
  Transmission Date: 20090109
  Serious: Yes (Hospitalization, Disabling)
  Sender: FDA-Public Use
  Company Number: 2008AL008693

PATIENT
  Age: 61 Year
  Sex: Male

DRUGS (6)
  1. DEXAMETHASONE [Suspect]
     Indication: PROPHYLAXIS OF NAUSEA AND VOMITING
     Dosage: 4 MG; BID; PO
     Route: 048
     Dates: start: 20071219, end: 20080101
  2. CISPLATIN [Concomitant]
  3. EPIRUBICIN [Concomitant]
  4. XELODA [Concomitant]
  5. GRANISETRON HCL [Concomitant]
  6. DOMPERIDONE [Concomitant]

REACTIONS (5)
  - ACIDOSIS [None]
  - COMA [None]
  - LEG AMPUTATION [None]
  - MALAISE [None]
  - PERIPHERAL ISCHAEMIA [None]
